FAERS Safety Report 9554035 (Version 2)
Quarter: 2014Q1

REPORT INFORMATION
  Report Type: Spontaneous
  Country: CZ (occurrence: CZ)
  Receive Date: 20130925
  Receipt Date: 20140206
  Transmission Date: 20141002
  Serious: Yes (Other)
  Sender: FDA-Public Use
  Company Number: CZ-GLAXOSMITHKLINE-B0924485A

PATIENT
  Age: 48 Year
  Sex: Female

DRUGS (2)
  1. TYVERB [Suspect]
     Indication: BREAST CANCER
     Dosage: 1250MG PER DAY
     Route: 065
     Dates: start: 20130708, end: 20131121
  2. CAPECITABINE [Concomitant]
     Route: 065

REACTIONS (2)
  - Bone marrow failure [Recovering/Resolving]
  - Diarrhoea [Recovering/Resolving]
